FAERS Safety Report 17803717 (Version 1)
Quarter: 2020Q3

REPORT INFORMATION
  Report Type: Spontaneous
  Country: SE (occurrence: SE)
  Receive Date: 20200519
  Receipt Date: 20200519
  Transmission Date: 20201105
  Serious: Yes (Other)
  Sender: FDA-Public Use
  Company Number: SE-MYLANLABS-2020M1048403

PATIENT
  Sex: Male
  Weight: 2.89 kg

DRUGS (6)
  1. IMUREL                             /00001501/ [Suspect]
     Active Substance: AZATHIOPRINE SODIUM
     Indication: IMMUNOSUPPRESSANT DRUG THERAPY
     Dosage: 2 MG/KG, 1D
     Route: 064
  2. ERYTHROPOIETIN [Suspect]
     Active Substance: ERYTHROPOIETIN
     Indication: PRODUCT USED FOR UNKNOWN INDICATION
     Dosage: UNK
     Route: 064
  3. TRANEXAMIC ACID. [Suspect]
     Active Substance: TRANEXAMIC ACID
     Indication: VAGINAL HAEMORRHAGE
     Dosage: UNK
     Route: 064
  4. FERROUS SULFATE. [Suspect]
     Active Substance: FERROUS SULFATE
     Indication: PRODUCT USED FOR UNKNOWN INDICATION
     Dosage: UNK
     Route: 064
  5. PROGRAF [Suspect]
     Active Substance: TACROLIMUS
     Indication: IMMUNOSUPPRESSANT DRUG THERAPY
     Dosage: UNK UNK, BID
     Route: 064
  6. ACETYLSALICYLIC ACID [Suspect]
     Active Substance: ASPIRIN
     Indication: PRODUCT USED FOR UNKNOWN INDICATION
     Dosage: 160 MG
     Route: 064

REACTIONS (3)
  - Premature baby [Recovered/Resolved]
  - Neonatal respiratory distress syndrome [Recovered/Resolved]
  - Foetal exposure during pregnancy [Recovered/Resolved]
